FAERS Safety Report 10257399 (Version 1)
Quarter: 2014Q2

REPORT INFORMATION
  Report Type: Spontaneous
  Country: US (occurrence: None)
  Receive Date: 20140620
  Receipt Date: 20140620
  Transmission Date: 20141212
  Serious: Yes (Other)
  Sender: FDA-Public Use
  Company Number: 2389711

PATIENT
  Age: 62 Year
  Sex: Female
  Weight: 88 kg

DRUGS (2)
  1. MORPHINE SULFATE [Suspect]
     Indication: PAIN MANAGEMENT
     Route: 037
  2. MARCAINE [Suspect]
     Indication: PRODUCT USED FOR UNKNOWN INDICATION
     Route: 024

REACTIONS (3)
  - Hypertension [None]
  - Procedural complication [None]
  - Drug ineffective [None]
